FAERS Safety Report 5091883-3 (Version None)
Quarter: 2006Q3

REPORT INFORMATION
  Report Type: 
  Country: None (occurrence: None)
  Receive Date: 20060825
  Receipt Date: 20060817
  Transmission Date: 20061208
  Serious: Yes (Hospitalization)
  Sender: FDA-Public Use
  Company Number: 2006090454

PATIENT
  Age: 68 Year
  Sex: Female
  Weight: 36 kg

DRUGS (11)
  1. AZULFIDINE EN-TABS [Suspect]
     Indication: RHEUMATOID ARTHRITIS
     Dosage: 1000 MG (500 MG, 2 IN 1 D) ORAL
     Route: 048
     Dates: start: 19990327, end: 20060530
  2. SULFASALAZINE [Suspect]
     Indication: DRUG USE FOR UNKNOWN INDICATION
     Dosage: 500 MG (500 MG, 1 IN 1 D), ORAL
     Route: 048
     Dates: start: 20050709, end: 20060530
  3. KREMEZIN (CHARCOAL, ACTIVATED) [Suspect]
     Indication: RENAL FAILURE CHRONIC
     Dosage: 4 GRAM (2 GRAM, 2 IN 1 D) ORAL
     Route: 048
     Dates: start: 20060401, end: 20060530
  4. NORVASC [Concomitant]
  5. PERSANTIN [Concomitant]
  6. AZUCURENIN S (LEVOGLUTAMINE, SODIUM GUALENATE) [Concomitant]
  7. BISOLVON (BROMHEXINE HYDROCHLORIDE) [Concomitant]
  8. URINORM (BENZBROMARONE) [Concomitant]
  9. ALLOPURINOL [Concomitant]
  10. PREDNISOLONE [Concomitant]
  11. EPOGEN [Concomitant]

REACTIONS (11)
  - CONSTIPATION [None]
  - DIALYSIS [None]
  - DISSEMINATED INTRAVASCULAR COAGULATION [None]
  - DRUG EFFECT DECREASED [None]
  - FLUID INTAKE RESTRICTION [None]
  - GASTROINTESTINAL NECROSIS [None]
  - LARGE INTESTINE PERFORATION [None]
  - PELVIC MASS [None]
  - PROCEDURAL COMPLICATION [None]
  - RENAL FAILURE CHRONIC [None]
  - WHITE BLOOD CELL COUNT DECREASED [None]
